FAERS Safety Report 16038321 (Version 7)
Quarter: 2019Q3

REPORT INFORMATION
  Report Type: Report from Study
  Country: US (occurrence: US)
  Receive Date: 20190305
  Receipt Date: 20190911
  Transmission Date: 20191004
  Serious: Yes (Death, Hospitalization)
  Sender: FDA-Public Use
  Company Number: PHHO2019US002449

PATIENT
  Age: 51 Year
  Sex: Male
  Weight: 138 kg

DRUGS (2)
  1. KISQALI [Suspect]
     Active Substance: RIBOCICLIB
     Indication: MALIGNANT HAEMANGIOPERICYTOMA
     Dosage: 400 MG, C1-7 OF 21 DAY CYCLE
     Route: 048
     Dates: start: 20190206, end: 20190211
  2. DOXORUBICIN [Suspect]
     Active Substance: DOXORUBICIN
     Indication: MALIGNANT HAEMANGIOPERICYTOMA
     Dosage: 60 MG/M2, D10 OF 21 DAY CYCLE
     Route: 042
     Dates: start: 20190215, end: 20190215

REACTIONS (6)
  - Neutrophil count decreased [Recovered/Resolved]
  - Platelet count decreased [Recovered/Resolved]
  - Blood loss anaemia [Recovering/Resolving]
  - Haemorrhage intracranial [Not Recovered/Not Resolved]
  - Acute kidney injury [Recovered/Resolved]
  - Malignant haemangiopericytoma [Fatal]

NARRATIVE: CASE EVENT DATE: 20190227
